FAERS Safety Report 21759400 (Version 16)
Quarter: 2024Q1

REPORT INFORMATION
  Report Type: Report from Study
  Country: AR (occurrence: AR)
  Receive Date: 20221221
  Receipt Date: 20240328
  Transmission Date: 20240409
  Serious: Yes (Life-Threatening, Other)
  Sender: FDA-Public Use
  Company Number: AR-002147023-NVSC2022AR281092

PATIENT
  Age: 54 Year
  Sex: Male

DRUGS (3)
  1. COSENTYX [Suspect]
     Active Substance: SECUKINUMAB
     Indication: Psoriasis
     Dosage: 300 MG, QMO
     Route: 065
     Dates: start: 20170712
  2. COSENTYX [Suspect]
     Active Substance: SECUKINUMAB
     Dosage: 300 MG, QMO
     Route: 058
     Dates: start: 20180712, end: 20220722
  3. COSENTYX [Suspect]
     Active Substance: SECUKINUMAB
     Dosage: 300 MG, QMO
     Route: 058

REACTIONS (24)
  - Psoriatic arthropathy [Unknown]
  - Pain [Unknown]
  - Psoriasis [Unknown]
  - Cerebrovascular accident [Unknown]
  - Haemorrhage [Unknown]
  - Gait disturbance [Unknown]
  - Hypokinesia [Unknown]
  - Grip strength decreased [Unknown]
  - Gait inability [Unknown]
  - Asthenia [Unknown]
  - Arthritis [Unknown]
  - Arthralgia [Not Recovered/Not Resolved]
  - Extremity contracture [Unknown]
  - Musculoskeletal stiffness [Unknown]
  - Malaise [Unknown]
  - Pyrexia [Unknown]
  - Condition aggravated [Unknown]
  - Genital infection [Unknown]
  - Oedema genital [Unknown]
  - Skin plaque [Unknown]
  - Skin fissures [Unknown]
  - Scab [Unknown]
  - Agitation [Unknown]
  - Product availability issue [Unknown]

NARRATIVE: CASE EVENT DATE: 20180801
